FAERS Safety Report 7015524-0 (Version None)
Quarter: 2010Q3

REPORT INFORMATION
  Report Type: 
  Country: None (occurrence: None)
  Receive Date: 20100927
  Receipt Date: 20100915
  Transmission Date: 20110219
  Serious: Yes (Other)
  Sender: FDA-Public Use
  Company Number: US-ELI_LILLY_AND_COMPANY-US201009004389

PATIENT
  Sex: Female

DRUGS (13)
  1. FORTEO [Suspect]
     Indication: OSTEOPOROSIS
     Dosage: 20 UG, DAILY (1/D)
     Route: 065
     Dates: start: 20091201
  2. SYNTHROID [Concomitant]
  3. PROPRANOLOL [Concomitant]
  4. PLAQUINOL [Concomitant]
  5. FOLIC ACID [Concomitant]
  6. METHOTREXATE [Concomitant]
  7. LEUCOVORIN CALCIUM [Concomitant]
  8. CALCIUM 600 + D [Concomitant]
  9. PRESERVISION LUTEIN EYE VITA.+MIN.SUP.SOFTG. [Concomitant]
  10. GLUCOSAMINE [Concomitant]
  11. RANITIDINE [Concomitant]
  12. EYE DROPS [Concomitant]
  13. RESTORIL [Concomitant]

REACTIONS (1)
  - FEMUR FRACTURE [None]
